FAERS Safety Report 8257033-7 (Version None)
Quarter: 2012Q2

REPORT INFORMATION
  Report Type: 
  Country: None (occurrence: None)
  Receive Date: 20120403
  Receipt Date: 20120326
  Transmission Date: 20120825
  Serious: Yes (Other)
  Sender: FDA-Public Use
  Company Number: US-GLAXOSMITHKLINE-A0972041A

PATIENT
  Age: 48 Year
  Sex: Male
  Weight: 97.7 kg

DRUGS (4)
  1. SEROQUEL [Suspect]
     Indication: DEPRESSION
     Dosage: 300MGD PER DAY
     Route: 065
  2. PRISTIQ [Suspect]
     Indication: DEPRESSION
     Dosage: 50MGD PER DAY
     Route: 065
     Dates: start: 20120201
  3. WELLBUTRIN [Suspect]
     Indication: DEPRESSION
     Route: 048
  4. LEXAPRO [Suspect]
     Indication: DEPRESSION
     Route: 065

REACTIONS (5)
  - MOOD SWINGS [None]
  - SUICIDAL IDEATION [None]
  - INSOMNIA [None]
  - PARANOIA [None]
  - DRUG INEFFECTIVE [None]
